FAERS Safety Report 9359813 (Version 3)
Quarter: 2013Q3

REPORT INFORMATION
  Report Type: Spontaneous
  Country: US (occurrence: US)
  Receive Date: 20130621
  Receipt Date: 20130926
  Transmission Date: 20140515
  Serious: No
  Sender: FDA-Public Use
  Company Number: US-009507513-1306USA006974

PATIENT
  Age: 18 Year
  Sex: Female
  Weight: 70.3 kg

DRUGS (2)
  1. IMPLANON [Suspect]
     Indication: CONTRACEPTION
     Dosage: 1 DF, UNK
     Route: 059
     Dates: start: 20100616, end: 20130606
  2. IMPLANON [Suspect]
     Dosage: 1 DF, UNK
     Route: 059
     Dates: start: 20130606

REACTIONS (4)
  - Device difficult to use [Recovered/Resolved]
  - Device breakage [Recovered/Resolved]
  - Expired drug administered [Unknown]
  - Incorrect drug administration duration [Unknown]
